FAERS Safety Report 8420863 (Version 3)
Quarter: 2016Q2

REPORT INFORMATION
  Report Type: Spontaneous
  Country: US (occurrence: US)
  Receive Date: 20120222
  Receipt Date: 20160617
  Transmission Date: 20160815
  Serious: Yes (Other)
  Sender: FDA-Public Use
  Company Number: US-ROCHE-1040752

PATIENT
  Age: 33 Year
  Sex: Male
  Weight: 110.78 kg

DRUGS (4)
  1. ACCUTANE [Suspect]
     Active Substance: ISOTRETINOIN
     Route: 048
  2. ACCUTANE [Suspect]
     Active Substance: ISOTRETINOIN
     Route: 048
     Dates: start: 20080520
  3. ACCUTANE [Suspect]
     Active Substance: ISOTRETINOIN
     Indication: PRODUCT USED FOR UNKNOWN INDICATION
     Route: 065
     Dates: start: 1990, end: 2000
  4. ACCUTANE [Suspect]
     Active Substance: ISOTRETINOIN
     Dosage: ON WEEK 4?HE ALSO ADMINISTERED ON 28 FEB 2006, 28 MAR 2006, 10 MAY 2006 AND 20 JUN 2006.
     Route: 048
     Dates: start: 20060131

REACTIONS (14)
  - Colitis ulcerative [Unknown]
  - Hyperkeratosis [Unknown]
  - Large intestine polyp [Unknown]
  - Irritable bowel syndrome [Unknown]
  - Dyshidrotic eczema [Unknown]
  - Blood cholesterol increased [Unknown]
  - Lip dry [Unknown]
  - Headache [Unknown]
  - Skin papilloma [Unknown]
  - Inflammatory bowel disease [Unknown]
  - Eczema [Unknown]
  - Urticaria [Unknown]
  - Furuncle [Unknown]
  - Blood triglycerides increased [Unknown]

NARRATIVE: CASE EVENT DATE: 20060104
